FAERS Safety Report 22826583 (Version 5)
Quarter: 2023Q4

REPORT INFORMATION
  Report Type: Report from Study
  Country: CN (occurrence: None)
  Receive Date: 20230816
  Receipt Date: 20231002
  Transmission Date: 20240110
  Serious: Yes (Hospitalization)
  Sender: FDA-Public Use
  Company Number: CN-ROCHE-3405010

PATIENT
  Age: 59 Year
  Sex: Male
  Weight: 64 kg

DRUGS (7)
  1. ATEZOLIZUMAB [Suspect]
     Active Substance: ATEZOLIZUMAB
     Indication: Small cell lung cancer extensive stage
     Dosage: MOST RECENT DOSE: 19/JUL/2023, TEMPORALLY STOPPED ON 08/AUG/2023, 17/AUG/2023
     Route: 041
     Dates: start: 20210408
  2. CISPLATIN [Suspect]
     Active Substance: CISPLATIN
     Indication: Small cell lung cancer extensive stage
     Dosage: MOST RECENT DOSE: 20/JUN/2021
     Route: 042
     Dates: start: 20210408
  3. ETOPOSIDE [Suspect]
     Active Substance: ETOPOSIDE
     Indication: Small cell lung cancer extensive stage
     Dosage: MOST RECENT DOSE: 20/JUN/2021
     Route: 042
     Dates: start: 20210408
  4. TAMSULOSIN HYDROCHLORIDE [Concomitant]
     Active Substance: TAMSULOSIN HYDROCHLORIDE
     Dates: start: 20221101
  5. TAMSULOSIN HYDROCHLORIDE [Concomitant]
     Active Substance: TAMSULOSIN HYDROCHLORIDE
     Dates: start: 20210507
  6. LEVOTHYROXINE SODIUM [Concomitant]
     Active Substance: LEVOTHYROXINE SODIUM
     Dates: start: 20220310
  7. COMPOUND DEXAMETHASONE ACETATE [Concomitant]
     Dates: start: 20230312

REACTIONS (2)
  - Sinus bradycardia [Recovered/Resolved]
  - Hypertension [Not Recovered/Not Resolved]

NARRATIVE: CASE EVENT DATE: 20230807
